FAERS Safety Report 9671220 (Version 2)
Quarter: 2014Q1

REPORT INFORMATION
  Report Type: Report from Study
  Country: BR (occurrence: BR)
  Receive Date: 20131106
  Receipt Date: 20140122
  Transmission Date: 20141002
  Serious: Yes (Other)
  Sender: FDA-Public Use
  Company Number: BR-BAYER-2013-132389

PATIENT
  Age: 65 Year
  Sex: Male
  Weight: 60 kg

DRUGS (5)
  1. NEXAVAR [Suspect]
     Indication: RENAL CANCER
     Dosage: 2 DF, BID
     Route: 048
     Dates: start: 20130626, end: 201309
  2. NEXAVAR [Suspect]
     Indication: RENAL CANCER
     Dosage: 2 DF, BID
     Route: 048
     Dates: start: 201309
  3. LOSARTAN [Concomitant]
     Indication: HYPERTENSION
     Dosage: 2 DF, QD
     Route: 048
     Dates: start: 201306
  4. AMLODIPINE [Concomitant]
     Indication: HYPERTENSION
     Dosage: 1 DF, HS
     Route: 048
     Dates: start: 201306
  5. SYNTHROID [Concomitant]

REACTIONS (11)
  - Blood pressure increased [Not Recovered/Not Resolved]
  - Retinal artery thrombosis [Not Recovered/Not Resolved]
  - Blood pressure increased [Not Recovered/Not Resolved]
  - Metastases to pancreas [Not Recovered/Not Resolved]
  - Abdominal discomfort [Recovering/Resolving]
  - Abdominal pain [Recovering/Resolving]
  - Diarrhoea [Recovering/Resolving]
  - Dry skin [Recovering/Resolving]
  - Blister [Recovering/Resolving]
  - Headache [Not Recovered/Not Resolved]
  - Amnesia [None]
